FAERS Safety Report 7570163-8 (Version None)
Quarter: 2011Q2

REPORT INFORMATION
  Report Type: 
  Country: None (occurrence: None)
  Receive Date: 20110624
  Receipt Date: 20110617
  Transmission Date: 20111010
  Serious: Yes (Other)
  Sender: FDA-Public Use
  Company Number: JP-JNJFOC-20100903183

PATIENT
  Sex: Female

DRUGS (12)
  1. LOXONIN [Concomitant]
     Route: 048
     Dates: start: 20100520
  2. PHENOBARBITAL TAB [Concomitant]
     Route: 048
  3. LEVOTHYROXINE SODIUM [Concomitant]
     Route: 048
     Dates: start: 20100827
  4. TOPIRAMATE [Suspect]
     Route: 048
     Dates: start: 20100610, end: 20100629
  5. CALCIUM LACTATE [Concomitant]
     Route: 048
     Dates: start: 20100827
  6. ZOLPIDEM [Concomitant]
     Indication: ILL-DEFINED DISORDER
     Route: 048
     Dates: start: 20100520
  7. TOPIRAMATE [Suspect]
     Indication: EPILEPSY
     Route: 048
     Dates: start: 20100520, end: 20100530
  8. DIOVAN [Concomitant]
     Route: 048
     Dates: start: 20100520
  9. TOPIRAMATE [Suspect]
     Route: 048
     Dates: start: 20100531, end: 20100609
  10. CRESTOR [Suspect]
     Indication: HYPERLIPIDAEMIA
     Route: 048
     Dates: start: 20100520, end: 20100629
  11. MAGMITT [Concomitant]
     Route: 048
     Dates: start: 20100520
  12. ALFAROL [Concomitant]
     Route: 048
     Dates: start: 20100827

REACTIONS (4)
  - ASPARTATE AMINOTRANSFERASE INCREASED [None]
  - EOSINOPHIL PERCENTAGE INCREASED [None]
  - BLOOD LACTATE DEHYDROGENASE INCREASED [None]
  - ALANINE AMINOTRANSFERASE INCREASED [None]
